FAERS Safety Report 10813059 (Version 1)
Quarter: 2015Q1

REPORT INFORMATION
  Report Type: Report from Study
  Country: US (occurrence: US)
  Receive Date: 20150218
  Receipt Date: 20150218
  Transmission Date: 20150721
  Serious: No
  Sender: FDA-Public Use
  Company Number: US-ABBVIE-14K-163-1272072-00

PATIENT
  Sex: Female

DRUGS (2)
  1. HUMIRA [Suspect]
     Active Substance: ADALIMUMAB
     Indication: JUVENILE IDIOPATHIC ARTHRITIS
     Dates: start: 20140513
  2. SONATA [Concomitant]
     Active Substance: ZALEPLON
     Indication: INSOMNIA
     Dosage: AT NIGHT

REACTIONS (2)
  - Anxiety [Not Recovered/Not Resolved]
  - Arthralgia [Unknown]

NARRATIVE: CASE EVENT DATE: 2014
